FAERS Safety Report 4323264-1 (Version None)
Quarter: 2004Q1

REPORT INFORMATION
  Report Type: 
  Country: None (occurrence: None)
  Receive Date: 20040323
  Receipt Date: 20031231
  Transmission Date: 20041129
  Serious: No
  Sender: FDA-Public Use
  Company Number: M03-341-199

PATIENT
  Age: 72 Year
  Sex: Male
  Weight: 99 kg

DRUGS (10)
  1. VELCADE [Suspect]
     Indication: MULTIPLE MYELOMA
     Dosage: INTRAVENOUS
     Route: 042
     Dates: start: 20031117, end: 20031128
  2. ACETYLSALICYLIC ACID SRT [Concomitant]
  3. ARANESP [Concomitant]
  4. ATENOLOL [Concomitant]
  5. DARVOCET-N (PROPACET) [Concomitant]
  6. DOVONEX (CALCIPOTRIOL) [Concomitant]
  7. DYAZIDE [Concomitant]
  8. MULTI-VITAMINS [Concomitant]
  9. NORVASC [Concomitant]
  10. PSORCON (DIFLORASONE DIACETATE) [Concomitant]

REACTIONS (2)
  - CONTUSION [None]
  - PLATELET COUNT DECREASED [None]
